FAERS Safety Report 6222092-X (Version None)
Quarter: 2009Q2

REPORT INFORMATION
  Report Type: 
  Country: None (occurrence: None)
  Receive Date: 20090609
  Receipt Date: 20090602
  Transmission Date: 20091009
  Serious: Yes (Life-Threatening)
  Sender: FDA-Public Use
  Company Number: 286540

PATIENT
  Sex: Female

DRUGS (3)
  1. HEPARIN SODIUM [Suspect]
     Dates: start: 20090513, end: 20090513
  2. (BIVALIRUDIN) [Suspect]
     Dosage: INTRAVENOUS
     Route: 042
     Dates: start: 20090511, end: 20090511
  3. PLAVIX [Concomitant]

REACTIONS (3)
  - ACUTE MYOCARDIAL INFARCTION [None]
  - AORTIC DISSECTION [None]
  - RETROPERITONEAL HAEMORRHAGE [None]
